FAERS Safety Report 18713003 (Version 1)
Quarter: 2021Q1

REPORT INFORMATION
  Report Type: Spontaneous
  Country: DE (occurrence: DE)
  Receive Date: 20210107
  Receipt Date: 20210107
  Transmission Date: 20210419
  Serious: Yes (Hospitalization)
  Sender: FDA-Public Use
  Company Number: DE-ABBVIE-21K-062-3718803-00

PATIENT
  Age: 55 Year
  Sex: Female

DRUGS (1)
  1. HUMIRA [Suspect]
     Active Substance: ADALIMUMAB
     Indication: RHEUMATOID ARTHRITIS
     Route: 058
     Dates: start: 2019

REACTIONS (3)
  - Osteonecrosis [Not Recovered/Not Resolved]
  - Device physical property issue [Not Recovered/Not Resolved]
  - Resorption bone increased [Not Recovered/Not Resolved]

NARRATIVE: CASE EVENT DATE: 202012
